FAERS Safety Report 23517057 (Version 1)
Quarter: 2024Q1

REPORT INFORMATION
  Report Type: 
  Country: None (occurrence: None)
  Receive Date: 20240213
  Receipt Date: 20240213
  Transmission Date: 20240410
  Serious: No
  Sender: FDA-Public Use
  Company Number: CA-002147023-NVSC2022CA264201

PATIENT

DRUGS (5)
  1. XOLAIR [Suspect]
     Active Substance: OMALIZUMAB
     Dates: start: 20221021
  2. XOLAIR [Suspect]
     Active Substance: OMALIZUMAB
     Dates: start: 20221118
  3. CETIRIZINE [Suspect]
     Active Substance: CETIRIZINE HYDROCHLORIDE
     Dosage: 20 MG, BID
     Dates: start: 202112, end: 202203
  4. RUPATADINE FUMARATE [Concomitant]
     Active Substance: RUPATADINE FUMARATE
     Dosage: 2 DOSAGE FORM, BID
     Dates: start: 202203
  5. PREDNISONE [Concomitant]
     Active Substance: PREDNISONE
     Dosage: UNK

REACTIONS (5)
  - Anaphylactic reaction [None]
  - Skin plaque [None]
  - Dizziness [None]
  - Headache [None]
  - Urticaria [None]
